FAERS Safety Report 5049680-0 (Version None)
Quarter: 2006Q3

REPORT INFORMATION
  Report Type: 
  Country: None (occurrence: None)
  Receive Date: 20060706
  Receipt Date: 20060622
  Transmission Date: 20061208
  Serious: Yes (Hospitalization, Other)
  Sender: FDA-Public Use
  Company Number: 200612657GDS

PATIENT
  Age: 70 Year
  Sex: Male
  Weight: 53.978 kg

DRUGS (4)
  1. SORAFENIB [Suspect]
     Indication: RENAL CELL CARCINOMA STAGE UNSPECIFIED
     Dosage: 400 MG, BID, ORAL
     Route: 048
     Dates: start: 20060531, end: 20060613
  2. HYZAAR [Concomitant]
  3. ATENOLOL [Concomitant]
  4. ZANTAC [Concomitant]

REACTIONS (6)
  - BLOOD CREATININE INCREASED [None]
  - HYPOTENSION [None]
  - MALAISE [None]
  - NEUTROPENIA [None]
  - RASH ERYTHEMATOUS [None]
  - RASH MACULAR [None]
